FAERS Safety Report 8270229-3 (Version None)
Quarter: 2012Q2

REPORT INFORMATION
  Report Type: 
  Country: None (occurrence: None)
  Receive Date: 20120410
  Receipt Date: 20120403
  Transmission Date: 20120825
  Serious: Yes (Death)
  Sender: FDA-Public Use
  Company Number: TW-SANOFI-AVENTIS-2012SA001412

PATIENT
  Age: 68 Year
  Sex: Male

DRUGS (5)
  1. FAMOTIDINE [Concomitant]
  2. CABAZITAXEL [Suspect]
     Indication: PROSTATE CANCER
     Route: 042
     Dates: start: 20111219, end: 20111219
  3. DIPHENHYDRAMINE HCL [Concomitant]
     Route: 042
  4. PREDNISOLONE [Suspect]
     Indication: PROSTATE CANCER
     Route: 048
     Dates: start: 20111219, end: 20120101
  5. DEXAMETHASONE [Concomitant]
     Route: 042

REACTIONS (1)
  - DEATH [None]
